FAERS Safety Report 7032219-8 (Version None)
Quarter: 2010Q4

REPORT INFORMATION
  Report Type: 
  Country: None (occurrence: None)
  Receive Date: 20101007
  Receipt Date: 20100305
  Transmission Date: 20110411
  Serious: Yes (Hospitalization)
  Sender: FDA-Public Use
  Company Number: TW-BRISTOL-MYERS SQUIBB COMPANY-15004427

PATIENT
  Age: 48 Year
  Sex: Male

DRUGS (4)
  1. CETUXIMAB [Suspect]
     Indication: TONSIL CANCER
     Dosage: MOST RECENT INF PRIOR TO EVENT:09FEB10
     Route: 042
     Dates: start: 20091009
  2. PACLITAXEL [Suspect]
     Indication: TONSIL CANCER
     Route: 042
     Dates: start: 20091009, end: 20091204
  3. CISPLATIN [Suspect]
     Indication: TONSIL CANCER
     Route: 042
     Dates: start: 20091009, end: 20091204
  4. RADIOTHERAPY [Suspect]
     Indication: TONSIL CANCER
     Dates: start: 20091229

REACTIONS (2)
  - PNEUMONIA ASPIRATION [None]
  - RADIATION SKIN INJURY [None]
